FAERS Safety Report 19106113 (Version 1)
Quarter: 2021Q2

REPORT INFORMATION
  Report Type: Report from Study
  Country: DE (occurrence: DE)
  Receive Date: 20210408
  Receipt Date: 20210408
  Transmission Date: 20210717
  Serious: Yes (Hospitalization, Other)
  Sender: FDA-Public Use
  Company Number: DE-SUN PHARMACEUTICAL INDUSTRIES LTD-2021RR-286769

PATIENT
  Age: 86 Year
  Sex: Male

DRUGS (12)
  1. METOHEXAL SUCC [Concomitant]
     Active Substance: METOPROLOL SUCCINATE
     Indication: PRE-EXISTING DISEASE
     Dosage: 47.5 MILLIGRAM, BID
     Route: 048
  2. TORASEMIDE [Concomitant]
     Active Substance: TORSEMIDE
     Indication: PRE-EXISTING DISEASE
     Dosage: 5 MILLIGRAM, DAILY
     Route: 048
     Dates: start: 2014
  3. FERRO?SANOL DUODENAL [Concomitant]
     Active Substance: FERROUS GLYCINE SULFATE
     Indication: PRE-EXISTING DISEASE
     Dosage: 100 MILLIGRAM, UNK
     Route: 048
     Dates: start: 2015
  4. CLEXANE [Concomitant]
     Active Substance: ENOXAPARIN SODIUM
     Indication: PROPHYLAXIS
     Dosage: 4000 INTERNATIONAL UNIT, DAILY
     Route: 058
     Dates: start: 20200807, end: 20200811
  5. ODOMZO [Suspect]
     Active Substance: SONIDEGIB
     Indication: BASAL CELL CARCINOMA
     Dosage: 200 MILLIGRAM, DAILY
     Route: 048
     Dates: start: 20200617, end: 20210301
  6. ASPIRIN. [Concomitant]
     Active Substance: ASPIRIN
     Indication: PRE-EXISTING DISEASE
     Dosage: 100 MILLIGRAM, DAILY
     Route: 048
  7. SIMVASTATIN. [Concomitant]
     Active Substance: SIMVASTATIN
     Indication: PRE-EXISTING DISEASE
     Dosage: 40 MILLIGRAM, DAILY
     Route: 048
  8. JANUMET [Concomitant]
     Active Substance: METFORMIN HYDROCHLORIDE\SITAGLIPTIN PHOSPHATE
     Indication: PRE-EXISTING DISEASE
     Dosage: 1000 MILLIGRAM, DAILY
     Route: 048
     Dates: start: 2015
  9. ERYTHROCYTE CONCENTRATE [Concomitant]
     Active Substance: HUMAN RED BLOOD CELL
     Indication: PRE-EXISTING DISEASE
     Dosage: UNK
     Route: 042
     Dates: start: 2020
  10. VITAMINE B12 [Concomitant]
     Active Substance: CYANOCOBALAMIN
     Indication: PRE-EXISTING DISEASE
     Dosage: 1000 MICROGRAM, UNK
     Route: 030
     Dates: start: 2018
  11. PREGABALIN. [Concomitant]
     Active Substance: PREGABALIN
     Indication: PRE-EXISTING DISEASE
     Dosage: 200 MILLIGRAM, BID
     Route: 048
     Dates: start: 2012
  12. FLOXAL EYE OINTMENT [Concomitant]
     Indication: SKIN NEOPLASM EXCISION
     Dosage: 1 APPLICATION, THREE TIMES DAILY
     Route: 031
     Dates: start: 202005

REACTIONS (1)
  - Squamous cell carcinoma [Recovered/Resolved]

NARRATIVE: CASE EVENT DATE: 20210301
